FAERS Safety Report 23306999 (Version 1)
Quarter: 2023Q4

REPORT INFORMATION
  Report Type: Spontaneous
  Country: US (occurrence: US)
  Receive Date: 20231218
  Receipt Date: 20231218
  Transmission Date: 20240109
  Serious: No
  Sender: FDA-Public Use
  Company Number: US-RECKITT BENCKISER HEALTHCARE INT LIMITED-RB-092227-2023

PATIENT
  Sex: Male

DRUGS (4)
  1. DELSYM NO MESS VAPOR ROLL ON [Suspect]
     Active Substance: CAMPHOR (NATURAL)\EUCALYPTUS OIL\MENTHOL
     Indication: Cough
     Dosage: UNKNOWN
     Route: 050
  2. DELSYM NO MESS VAPOR ROLL ON [Suspect]
     Active Substance: CAMPHOR (NATURAL)\EUCALYPTUS OIL\MENTHOL
     Indication: Rhinorrhoea
  3. DELSYM NO MESS VAPOR ROLL ON [Suspect]
     Active Substance: CAMPHOR (NATURAL)\EUCALYPTUS OIL\MENTHOL
     Indication: Influenza
  4. DELSYM NO MESS VAPOR ROLL ON [Suspect]
     Active Substance: CAMPHOR (NATURAL)\EUCALYPTUS OIL\MENTHOL
     Indication: Nasopharyngitis

REACTIONS (1)
  - Drug effective for unapproved indication [Unknown]
